FAERS Safety Report 5924264-8 (Version None)
Quarter: 2008Q4

REPORT INFORMATION
  Report Type: 
  Country: None (occurrence: None)
  Receive Date: 20081020
  Receipt Date: 20081014
  Transmission Date: 20090506
  Serious: Yes (Hospitalization)
  Sender: FDA-Public Use
  Company Number: US-PFIZER INC-2007097141

PATIENT
  Sex: Female
  Weight: 73 kg

DRUGS (8)
  1. EXUBERA [Suspect]
     Dosage: DAILY DOSE:7MG-TEXT:TDD: 1 MG QD/3 MG BID
     Route: 055
     Dates: start: 20070817
  2. GLUCOPHAGE [Concomitant]
     Route: 048
     Dates: start: 20010315
  3. ZETIA [Concomitant]
     Route: 048
     Dates: start: 20070307
  4. ZETIA [Concomitant]
     Dates: start: 20071115
  5. PROPRANOLOL [Concomitant]
     Route: 048
     Dates: start: 20040928
  6. LISINOPRIL [Concomitant]
     Route: 048
     Dates: start: 20060101
  7. LASIX [Concomitant]
     Route: 048
     Dates: start: 20071115
  8. LUNESTA [Concomitant]
     Route: 048
     Dates: start: 20071115

REACTIONS (1)
  - CARDIAC FAILURE CONGESTIVE [None]
